APPROVED DRUG PRODUCT: PAMELOR
Active Ingredient: NORTRIPTYLINE HYDROCHLORIDE
Strength: EQ 10MG BASE/5ML
Dosage Form/Route: SOLUTION;ORAL
Application: N018012 | Product #001
Applicant: SPECGX LLC
Approved: Approved Prior to Jan 1, 1982 | RLD: No | RS: No | Type: DISCN